FAERS Safety Report 9772101 (Version 1)
Quarter: 2013Q4

REPORT INFORMATION
  Report Type: Spontaneous
  Country: US (occurrence: None)
  Receive Date: 20131218
  Receipt Date: 20131218
  Transmission Date: 20140711
  Serious: Yes (Hospitalization)
  Sender: FDA-Public Use
  Company Number: None

PATIENT
  Age: 24 Year
  Sex: Female
  Weight: 58.06 kg

DRUGS (1)
  1. ACETAMINOPHEN [Suspect]
     Indication: NASOPHARYNGITIS
     Dates: start: 20131215, end: 20131215

REACTIONS (11)
  - Flushing [None]
  - Skin irritation [None]
  - Rhinorrhoea [None]
  - Sneezing [None]
  - Swelling face [None]
  - Eye swelling [None]
  - Pharyngeal oedema [None]
  - Urticaria [None]
  - Nasopharyngitis [None]
  - Dyspnoea [None]
  - Drug hypersensitivity [None]
